FAERS Safety Report 4498817-0 (Version None)
Quarter: 2004Q4

REPORT INFORMATION
  Report Type: 
  Country: None (occurrence: None)
  Receive Date: 20041111
  Receipt Date: 20041102
  Transmission Date: 20050328
  Serious: Yes (Hospitalization)
  Sender: FDA-Public Use
  Company Number: JP-BRISTOL-MYERS SQUIBB COMPANY-12757993

PATIENT
  Age: 60 Year
  Sex: Male

DRUGS (6)
  1. ENDOXAN [Suspect]
     Indication: MULTIPLE MYELOMA
  2. DOXORUBICIN HCL [Suspect]
     Indication: MULTIPLE MYELOMA
  3. VINCRISTINE [Suspect]
     Indication: MULTIPLE MYELOMA
  4. DEXAMETHASONE [Suspect]
     Indication: MULTIPLE MYELOMA
  5. MELPHALAN [Suspect]
     Indication: MULTIPLE MYELOMA
  6. PERIPHERAL BLOOD STEM CELL TRANSPLANTATION [Concomitant]

REACTIONS (1)
  - COLON CANCER [None]
